FAERS Safety Report 6596689-1 (Version None)
Quarter: 2010Q1

REPORT INFORMATION
  Report Type: 
  Country: None (occurrence: None)
  Receive Date: 20100212
  Receipt Date: 20100201
  Transmission Date: 20100710
  Serious: Yes (Hospitalization)
  Sender: FDA-Public Use
  Company Number: TPA2010A00450

PATIENT
  Age: 84 Year
  Sex: Female

DRUGS (1)
  1. PREVACID [Suspect]
     Indication: GASTROOESOPHAGEAL REFLUX DISEASE
     Dosage: 15 MG, 2 IN 1 D, PER ORAL; 30 MG, 1 IN 1 D, PER ORAL
     Route: 048

REACTIONS (1)
  - HOSPITALISATION [None]
